FAERS Safety Report 5503155-0 (Version None)
Quarter: 2007Q4

REPORT INFORMATION
  Report Type: 
  Country: None (occurrence: None)
  Receive Date: 20071031
  Receipt Date: 20071024
  Transmission Date: 20080405
  Serious: Yes (Hospitalization)
  Sender: FDA-Public Use
  Company Number: GB-AVENTIS-200719885GDDC

PATIENT
  Age: 54 Year
  Sex: Male
  Weight: 80 kg

DRUGS (3)
  1. METRONIDAZOLE [Suspect]
     Indication: ABSCESS JAW
     Route: 048
     Dates: start: 20070709, end: 20070716
  2. AMOXICILLIN [Concomitant]
     Indication: ABSCESS JAW
     Dosage: DOSE: UNK
     Dates: start: 20070708, end: 20070709
  3. GARLIC EXTRACT [Concomitant]
     Indication: ARTHRITIS
     Route: 048
     Dates: start: 20070501

REACTIONS (3)
  - CIRCADIAN RHYTHM SLEEP DISORDER [None]
  - LETHARGY [None]
  - MANIA [None]
